FAERS Safety Report 9593091 (Version 4)
Quarter: 2014Q2

REPORT INFORMATION
  Report Type: Spontaneous
  Country: US (occurrence: US)
  Receive Date: 20131004
  Receipt Date: 20140401
  Transmission Date: 20141212
  Serious: Yes (Hospitalization)
  Sender: FDA-Public Use
  Company Number: US-SA-POMP-1002293

PATIENT
  Age: 16 Year
  Sex: Female
  Weight: 50.5 kg

DRUGS (13)
  1. MYOZYME [Suspect]
     Indication: GLYCOGEN STORAGE DISEASE TYPE II
     Dosage: UNK
     Route: 042
     Dates: start: 20090505
  2. LUMIZYME [Suspect]
     Indication: GLYCOGEN STORAGE DISEASE TYPE II
     Dosage: 1000 MG, Q2W
     Route: 042
     Dates: start: 20101231
  3. LUMIZYME [Suspect]
     Indication: GLYCOGEN STORAGE DISEASE TYPE II
     Dosage: 1000 MG, Q2W
     Route: 042
  4. DIPHENHYDRAMINE [Concomitant]
     Indication: PREMEDICATION
     Dosage: 25 MG, 1 HOUR PRIOR TO INFUSION
     Route: 048
     Dates: start: 20090505
  5. IBUPROFEN [Concomitant]
     Indication: PREMEDICATION
     Dosage: 400 MG, 1 HOUR BEFORE INFUSION
     Dates: start: 20090505
  6. VITAMINS NOS [Concomitant]
     Dosage: 1 UNK, QD
     Route: 048
  7. AMITRIPTYLINE [Concomitant]
     Indication: ANXIETY
     Dosage: 25MG TABLET-50 MG
     Route: 048
  8. SERTRALINE [Concomitant]
     Indication: ANXIETY
     Route: 048
  9. COMPAZINE [Concomitant]
     Indication: ANXIETY
  10. GABAPENTIN [Concomitant]
     Indication: PAIN
     Route: 048
  11. EPHEDRIN [Concomitant]
     Indication: GLYCOGEN STORAGE DISEASE TYPE II
  12. CELEBREX [Concomitant]
  13. METHYLPREDNISOLONE [Concomitant]
     Route: 065

REACTIONS (6)
  - Serum sickness [Recovered/Resolved with Sequelae]
  - Pain [Not Recovered/Not Resolved]
  - Abdominal pain [Recovered/Resolved with Sequelae]
  - Paraesthesia [Not Recovered/Not Resolved]
  - Dizziness [Recovered/Resolved with Sequelae]
  - Nausea [Recovered/Resolved with Sequelae]
